FAERS Safety Report 18311335 (Version 3)
Quarter: 2021Q4

REPORT INFORMATION
  Report Type: Report from Study
  Country: US (occurrence: US)
  Receive Date: 20200925
  Receipt Date: 20211220
  Transmission Date: 20220303
  Serious: Yes (Hospitalization)
  Sender: FDA-Public Use
  Company Number: NVSC2020US257397

PATIENT
  Age: 50 Year
  Sex: Female

DRUGS (3)
  1. MAYZENT [Suspect]
     Active Substance: SIPONIMOD
     Indication: Relapsing multiple sclerosis
     Dosage: 2 MG, QD
     Route: 048
  2. MAYZENT [Suspect]
     Active Substance: SIPONIMOD
     Dosage: UNK UNK, QD
     Route: 048
     Dates: start: 20200401
  3. MAYZENT [Suspect]
     Active Substance: SIPONIMOD
     Dosage: 0.5 MG, QD
     Route: 048

REACTIONS (8)
  - Disease recurrence [Unknown]
  - Vision blurred [Recovered/Resolved]
  - Vision blurred [Unknown]
  - Gastrointestinal disorder [Unknown]
  - Feeling abnormal [Unknown]
  - Rash [Recovered/Resolved]
  - Pruritus [Recovered/Resolved]
  - Skin exfoliation [Unknown]

NARRATIVE: CASE EVENT DATE: 20200401
